FAERS Safety Report 13339401 (Version 1)
Quarter: 2017Q1

REPORT INFORMATION
  Report Type: Other
  Country: CA (occurrence: CA)
  Receive Date: 20170315
  Receipt Date: 20170315
  Transmission Date: 20170428
  Serious: Yes (Hospitalization)
  Sender: FDA-Public Use
  Company Number: CA-APOTEX-2017AP007875

PATIENT
  Age: 53 Year
  Sex: Female

DRUGS (7)
  1. CLONAZEPAM. [Concomitant]
     Active Substance: CLONAZEPAM
     Indication: PRODUCT USED FOR UNKNOWN INDICATION
     Route: 065
  2. TECTA [Suspect]
     Active Substance: PANTOPRAZOLE MAGNESIUM
     Indication: DYSPEPSIA
     Dosage: 40 MG, QD
     Route: 048
  3. TRAZODONE [Concomitant]
     Active Substance: TRAZODONE HYDROCHLORIDE
     Indication: PRODUCT USED FOR UNKNOWN INDICATION
     Route: 065
  4. TYLENOL [Concomitant]
     Active Substance: ACETAMINOPHEN
     Indication: PRODUCT USED FOR UNKNOWN INDICATION
     Route: 065
  5. ENTYVIO [Suspect]
     Active Substance: VEDOLIZUMAB
     Indication: COLITIS ULCERATIVE
     Route: 042
  6. PANTOPRAZOLE [Suspect]
     Active Substance: PANTOPRAZOLE SODIUM
     Indication: DYSPEPSIA
     Route: 065
  7. APO-PREDNISONE [Suspect]
     Active Substance: PREDNISONE
     Indication: COLITIS ULCERATIVE
     Dosage: 40 MG, QD
     Route: 048

REACTIONS (16)
  - Glossitis [Unknown]
  - Myalgia [Unknown]
  - Anaemia [Unknown]
  - Dry eye [Unknown]
  - Eye swelling [Unknown]
  - Frequent bowel movements [Unknown]
  - Muscular weakness [Unknown]
  - Throat irritation [Unknown]
  - Back pain [Unknown]
  - Hypoaesthesia oral [Unknown]
  - Vision blurred [Unknown]
  - Colitis ulcerative [Unknown]
  - Dyspepsia [Unknown]
  - Feeling abnormal [Unknown]
  - Pulmonary mass [Unknown]
  - Arthralgia [Unknown]
